FAERS Safety Report 8791546 (Version 1)
Quarter: 2012Q4

REPORT INFORMATION
  Report Type: Spontaneous
  Country: PL (occurrence: None)
  Receive Date: 20120912
  Receipt Date: 20120912
  Transmission Date: 20130627
  Serious: Yes (Hospitalization, Other)
  Sender: FDA-Public Use
  Company Number: 2012MA010699

PATIENT
  Age: 44 Year
  Sex: Male

DRUGS (2)
  1. HALOPERIDOL LACTATE [Suspect]
     Route: 048
  2. CLOZAPINE [Suspect]
     Route: 048

REACTIONS (15)
  - Neuroleptic malignant syndrome [None]
  - CSF glucose decreased [None]
  - Acute respiratory failure [None]
  - Respiratory tract infection bacterial [None]
  - Oral candidiasis [None]
  - Urinary tract infection bacterial [None]
  - Skin ulcer [None]
  - Drug effect decreased [None]
  - Insomnia [None]
  - Muscular weakness [None]
  - Muscular weakness [None]
  - Anaemia [None]
  - Hypokalaemia [None]
  - Depressed mood [None]
  - Schizophrenia, catatonic type [None]
